FAERS Safety Report 9660897 (Version 1)
Quarter: 2013Q4

REPORT INFORMATION
  Report Type: Spontaneous
  Country: US (occurrence: US)
  Receive Date: 20131031
  Receipt Date: 20131031
  Transmission Date: 20140711
  Serious: No
  Sender: FDA-Public Use
  Company Number: US-009507513-1310USA015199

PATIENT
  Sex: Female

DRUGS (4)
  1. CLARITIN CHEWABLE TABLETS [Suspect]
     Indication: PRODUCT USED FOR UNKNOWN INDICATION
     Dosage: 5 MG, ONCE
     Route: 048
     Dates: start: 20131018
  2. CLARITIN CHEWABLE TABLETS [Suspect]
     Dosage: 10 MG, ONCE
     Route: 048
     Dates: start: 20131018
  3. CLARITIN CHEWABLE TABLETS [Suspect]
     Dosage: 20 MG, ONCE
     Route: 048
     Dates: start: 20131019
  4. CLARITIN CHEWABLE TABLETS [Suspect]
     Dosage: 20 MG, ONCE
     Route: 048
     Dates: start: 20131019

REACTIONS (2)
  - Overdose [Unknown]
  - Drug ineffective [Unknown]
